FAERS Safety Report 9485406 (Version 3)
Quarter: 2013Q4

REPORT INFORMATION
  Report Type: Spontaneous
  Country: US (occurrence: US)
  Receive Date: 20130829
  Receipt Date: 20131107
  Transmission Date: 20140711
  Serious: Yes (Hospitalization, Other)
  Sender: FDA-Public Use
  Company Number: US-AMGEN-USASP2013059634

PATIENT
  Age: 60 Year
  Sex: Female
  Weight: 78 kg

DRUGS (14)
  1. NPLATE [Suspect]
     Indication: IMMUNE THROMBOCYTOPENIC PURPURA
     Dosage: 1 MUG/KG, EVERY SIX DAYS
     Route: 065
     Dates: start: 20130128
  2. CEFEPIME [Concomitant]
  3. PREDNISONE [Concomitant]
     Dosage: 60 MG, QD
     Route: 048
  4. OMEPRAZOLE [Concomitant]
  5. PROVIGIL                           /01265601/ [Concomitant]
  6. DULCOLAX                           /00064401/ [Concomitant]
  7. DOCUSATE SODIUM\SENNOSIDES [Concomitant]
  8. FAMOTIDINE [Concomitant]
  9. INSULIN [Concomitant]
  10. ALBUTEROL                          /00139501/ [Concomitant]
  11. LISINOPRIL [Concomitant]
  12. ATOVAQUONE [Concomitant]
  13. SIMVASTATIN [Concomitant]
     Dosage: 10 MG, QD
  14. SOLU MEDROL [Concomitant]

REACTIONS (17)
  - Brain stem infarction [Recovered/Resolved]
  - Haemorrhage intracranial [Recovering/Resolving]
  - Nausea [Recovering/Resolving]
  - Vomiting [Recovering/Resolving]
  - Vision blurred [Recovering/Resolving]
  - Cerebrovascular accident [Unknown]
  - Platelet count decreased [Recovering/Resolving]
  - Bacteraemia [Recovered/Resolved]
  - Urinary tract infection pseudomonal [Recovered/Resolved]
  - Thrombocytopenia [Unknown]
  - Sinus bradycardia [Unknown]
  - Platelet count increased [Recovering/Resolving]
  - Upper respiratory tract infection [Recovering/Resolving]
  - Petechiae [Recovered/Resolved]
  - Mental disorder [Unknown]
  - Muscular weakness [Unknown]
  - Headache [Unknown]
